FAERS Safety Report 9782438 (Version 1)
Quarter: 2013Q4

REPORT INFORMATION
  Report Type: Report from Study
  Country: US (occurrence: US)
  Receive Date: 20131226
  Receipt Date: 20131226
  Transmission Date: 20140711
  Serious: Yes (Other)
  Sender: FDA-Public Use
  Company Number: US-JNJFOC-20131214003

PATIENT
  Age: 51 Year
  Sex: Male

DRUGS (14)
  1. TOPAMAX [Suspect]
     Indication: PRODUCT USED FOR UNKNOWN INDICATION
     Route: 048
  2. KEFLEX [Concomitant]
     Indication: PRODUCT USED FOR UNKNOWN INDICATION
     Route: 048
  3. FLEXERIL [Concomitant]
     Indication: MUSCLE SPASMS
     Route: 048
  4. CYMBALTA [Concomitant]
     Indication: PRODUCT USED FOR UNKNOWN INDICATION
     Route: 048
  5. DALIRESP [Concomitant]
     Indication: PRODUCT USED FOR UNKNOWN INDICATION
     Route: 048
  6. NORCO [Concomitant]
     Indication: PAIN
     Dosage: 7.5 MG/325 MG PER TABLET
     Route: 048
  7. LOVAZA [Concomitant]
     Indication: PRODUCT USED FOR UNKNOWN INDICATION
     Route: 048
  8. REGLAN [Concomitant]
     Indication: PRODUCT USED FOR UNKNOWN INDICATION
     Route: 048
  9. NICOTROL [Concomitant]
     Indication: SMOKING CESSATION THERAPY
     Route: 055
  10. PROVENTIL HFA INHALANT [Concomitant]
     Indication: WHEEZING
     Route: 055
  11. RAPAFLO [Concomitant]
     Indication: PRODUCT USED FOR UNKNOWN INDICATION
     Route: 048
  12. SPIRIVA HANDIHALER [Concomitant]
     Indication: PRODUCT USED FOR UNKNOWN INDICATION
     Route: 055
  13. BACTRIM DS [Concomitant]
     Indication: PRODUCT USED FOR UNKNOWN INDICATION
     Dosage: 600 MG/160 MG PER TABLET
     Route: 048
  14. SYMBICORT [Concomitant]
     Indication: PRODUCT USED FOR UNKNOWN INDICATION
     Route: 055

REACTIONS (17)
  - Chronic obstructive pulmonary disease [Unknown]
  - Depression [Unknown]
  - Benign prostatic hyperplasia [Unknown]
  - Type 2 diabetes mellitus [Unknown]
  - Neuropathy peripheral [Unknown]
  - Erectile dysfunction [Unknown]
  - Deafness [Unknown]
  - Impaired gastric emptying [Unknown]
  - Migraine with aura [Unknown]
  - Arthralgia [Unknown]
  - Abdominal pain [Unknown]
  - Back pain [Unknown]
  - Snoring [Unknown]
  - Blood cholesterol increased [Unknown]
  - Vitamin B12 deficiency [Unknown]
  - Pain in extremity [Unknown]
  - Neck pain [Unknown]
